FAERS Safety Report 4426146-X (Version None)
Quarter: 2004Q3

REPORT INFORMATION
  Report Type: 
  Country: None (occurrence: None)
  Receive Date: 20040811
  Receipt Date: 20040722
  Transmission Date: 20050211
  Serious: Yes (Hospitalization)
  Sender: FDA-Public Use
  Company Number: ZANA001325

PATIENT
  Age: 44 Year
  Sex: Male

DRUGS (5)
  1. ZANAFLEX [Suspect]
     Indication: MUSCLE SPASMS
     Dosage: 4 MG DAILY ORAL
     Route: 048
     Dates: start: 20040617, end: 20040622
  2. VICODIN [Concomitant]
  3. ACCUPRIL [Concomitant]
  4. ZOLOFT [Concomitant]
  5. KLONOPIN [Concomitant]

REACTIONS (11)
  - ACUTE MYOCARDIAL INFARCTION [None]
  - ANGINA UNSTABLE [None]
  - BACK PAIN [None]
  - CHEST PAIN [None]
  - CONDITION AGGRAVATED [None]
  - CORONARY ARTERY DISEASE [None]
  - MUSCLE SPASMS [None]
  - NERVE COMPRESSION [None]
  - PAIN [None]
  - PAIN IN JAW [None]
  - TREATMENT NONCOMPLIANCE [None]
